FAERS Safety Report 14241146 (Version 1)
Quarter: 2017Q4

REPORT INFORMATION
  Report Type: Spontaneous
  Country: US (occurrence: US)
  Receive Date: 20171130
  Receipt Date: 20171130
  Transmission Date: 20180321
  Serious: Yes (Death)
  Sender: FDA-Public Use
  Company Number: US-LUNDBECK-DKLU2040526

PATIENT
  Age: 17 Year
  Sex: Male

DRUGS (2)
  1. SABRIL [Suspect]
     Active Substance: VIGABATRIN
     Indication: MENINGOENCEPHALITIS HERPETIC
     Route: 065
     Dates: start: 201502
  2. SABRIL [Suspect]
     Active Substance: VIGABATRIN
     Indication: CEREBRAL PALSY
     Route: 048
     Dates: start: 20160603

REACTIONS (1)
  - Death [Fatal]

NARRATIVE: CASE EVENT DATE: 20171115
